FAERS Safety Report 4302881-9 (Version None)
Quarter: 2004Q1

REPORT INFORMATION
  Report Type: 
  Country: None (occurrence: None)
  Receive Date: 20040220
  Receipt Date: 20040205
  Transmission Date: 20041129
  Serious: Yes (Hospitalization)
  Sender: FDA-Public Use
  Company Number: MPS1-10165

PATIENT
  Age: 32 Month
  Sex: Female
  Weight: 12 kg

DRUGS (2)
  1. ALDURAZYME [Suspect]
     Indication: MUCOPOLYSACCHARIDOSIS I
     Dosage: 0.725 MG/KG Q2WKS IV
     Route: 042
     Dates: start: 20031026
  2. XOPENEX [Concomitant]

REACTIONS (3)
  - COUGH [None]
  - EAR CONGESTION [None]
  - OTITIS MEDIA [None]
